FAERS Safety Report 11832439 (Version 2)
Quarter: 2015Q4

REPORT INFORMATION
  Report Type: Report from Study
  Country: US (occurrence: US)
  Receive Date: 20151214
  Receipt Date: 20151215
  Transmission Date: 20160305
  Serious: No
  Sender: FDA-Public Use
  Company Number: US-ABBVIE-15P-163-1467511-00

PATIENT
  Age: 24 Year
  Sex: Female

DRUGS (3)
  1. LUPANETA PACK [Suspect]
     Active Substance: ISOPROPYL ALCOHOL\LEUPROLIDE ACETATE\NORETHINDRONE ACETATE
     Indication: PRODUCT USED FOR UNKNOWN INDICATION
     Route: 048
     Dates: start: 20150820
  2. FLONASE [Concomitant]
     Active Substance: FLUTICASONE PROPIONATE
     Indication: SEASONAL ALLERGY
     Dosage: 2 SPRAYS EACH NOSTRIL DAILY
     Route: 045
     Dates: start: 2014
  3. LUPANETA PACK [Suspect]
     Active Substance: ISOPROPYL ALCOHOL\LEUPROLIDE ACETATE\NORETHINDRONE ACETATE
     Indication: ENDOMETRIOSIS
     Route: 065
     Dates: start: 20150820

REACTIONS (10)
  - Nervousness [Not Recovered/Not Resolved]
  - Onychoclasis [Not Recovered/Not Resolved]
  - Memory impairment [Not Recovered/Not Resolved]
  - Anxiety [Not Recovered/Not Resolved]
  - Sinusitis [Not Recovered/Not Resolved]
  - Insomnia [Not Recovered/Not Resolved]
  - Migraine [Recovering/Resolving]
  - Acne [Not Recovered/Not Resolved]
  - Alopecia [Not Recovered/Not Resolved]
  - Paraesthesia [Not Recovered/Not Resolved]

NARRATIVE: CASE EVENT DATE: 20150823
